FAERS Safety Report 10258126 (Version 1)
Quarter: 2014Q2

REPORT INFORMATION
  Report Type: Spontaneous
  Country: IT (occurrence: IT)
  Receive Date: 20140625
  Receipt Date: 20140625
  Transmission Date: 20141212
  Serious: Yes (Other)
  Sender: FDA-Public Use
  Company Number: IT-TEVA-490082ISR

PATIENT
  Age: 79 Year
  Sex: Male

DRUGS (5)
  1. AMOXICILLIN W/CLAVULANIC ACID [Suspect]
     Indication: TOOTH ABSCESS
     Dosage: 2 GRAM DAILY;
     Route: 048
     Dates: start: 20130918, end: 20130920
  2. CLEXANE - 4000 UI AXA SOLUZIONE INIETTABILE [Concomitant]
     Indication: PRODUCT USED FOR UNKNOWN INDICATION
     Route: 058
  3. PRITOR - 20 MG COMPRESSE [Concomitant]
     Indication: PRODUCT USED FOR UNKNOWN INDICATION
  4. SEQUACOR - COMPRESSE [Concomitant]
     Indication: PRODUCT USED FOR UNKNOWN INDICATION
  5. PREFOLIC - COMPRESSE GASTRORES 15 MG [Concomitant]
     Indication: PRODUCT USED FOR UNKNOWN INDICATION
     Dosage: GASTRO-RESISTANT TABLET

REACTIONS (2)
  - Presyncope [Recovering/Resolving]
  - Urticaria [Recovering/Resolving]
